FAERS Safety Report 24920124 (Version 1)
Quarter: 2025Q1

REPORT INFORMATION
  Report Type: Report from Study
  Country: US (occurrence: US)
  Receive Date: 20250204
  Receipt Date: 20250204
  Transmission Date: 20250409
  Serious: No
  Sender: EXELIXIS
  Company Number: US-EXELIXIS-CABO-24072866

PATIENT
  Age: 68 Year
  Sex: Male

DRUGS (1)
  1. CABOMETYX [Suspect]
     Active Substance: CABOZANTINIB S-MALATE
     Indication: Renal cancer
     Dosage: 40 MG, QD
     Route: 048
     Dates: start: 202401

REACTIONS (6)
  - Dysphagia [Unknown]
  - Adverse drug reaction [Unknown]
  - Dysphonia [Unknown]
  - Fatigue [Unknown]
  - Throat tightness [Unknown]
  - Food aversion [Not Recovered/Not Resolved]

NARRATIVE: CASE EVENT DATE: 20240101
